FAERS Safety Report 9779050 (Version 1)
Quarter: 2013Q4

REPORT INFORMATION
  Report Type: Spontaneous
  Country: US (occurrence: US)
  Receive Date: 20131223
  Receipt Date: 20131223
  Transmission Date: 20140711
  Serious: Yes (Other)
  Sender: FDA-Public Use
  Company Number: US-ENDO PHARMACEUTICALS INC.-OPCR20130365

PATIENT
  Age: 62 Year
  Sex: Female

DRUGS (4)
  1. OPANA ER 40MG [Suspect]
     Indication: BACK PAIN
     Route: 048
     Dates: start: 2013
  2. OPANA 10MG [Suspect]
     Indication: BACK PAIN
     Route: 048
     Dates: start: 201308
  3. OPANA 10MG [Suspect]
     Route: 048
     Dates: start: 2013, end: 201308
  4. INSULIN [Concomitant]
     Indication: PRODUCT USED FOR UNKNOWN INDICATION
     Dosage: UNK
     Route: 065

REACTIONS (2)
  - Drug abuse [Unknown]
  - Drug screen positive [Unknown]
